FAERS Safety Report 13465705 (Version 2)
Quarter: 2017Q2

REPORT INFORMATION
  Report Type: Spontaneous
  Country: US (occurrence: US)
  Receive Date: 20170421
  Receipt Date: 20170428
  Transmission Date: 20170830
  Serious: No
  Sender: FDA-Public Use
  Company Number: US-ASTRAZENECA-2017SE39736

PATIENT
  Age: 864 Month
  Sex: Female
  Weight: 59 kg

DRUGS (5)
  1. ZAFIRLUKAST. [Suspect]
     Active Substance: ZAFIRLUKAST
     Indication: LUNG DISORDER
     Route: 048
     Dates: start: 201702
  2. DICLOFENAC POTASSIUM. [Concomitant]
     Active Substance: DICLOFENAC POTASSIUM
     Route: 048
  3. ZAFIRLUKAST. [Suspect]
     Active Substance: ZAFIRLUKAST
     Indication: HYPERSENSITIVITY
     Route: 048
     Dates: start: 201702
  4. SYMBICORT [Suspect]
     Active Substance: BUDESONIDE\FORMOTEROL FUMARATE DIHYDRATE
     Indication: CHRONIC OBSTRUCTIVE PULMONARY DISEASE
     Dosage: 160/4.5 MCG 2 PUFFS TWICE A DAY
     Route: 055
     Dates: start: 201702
  5. ATORVASTATIN [Concomitant]
     Active Substance: ATORVASTATIN
     Indication: BLOOD CHOLESTEROL ABNORMAL
     Route: 048

REACTIONS (3)
  - Product use issue [Not Recovered/Not Resolved]
  - Paraesthesia oral [Not Recovered/Not Resolved]
  - Off label use [Not Recovered/Not Resolved]

NARRATIVE: CASE EVENT DATE: 201704
